FAERS Safety Report 12996767 (Version 1)
Quarter: 2016Q4

REPORT INFORMATION
  Report Type: Spontaneous
  Country: US (occurrence: US)
  Receive Date: 20161204
  Receipt Date: 20161204
  Transmission Date: 20170207
  Serious: No
  Sender: FDA-Public Use
  Company Number: US-009507513-1611USA010886

PATIENT
  Age: 24 Year
  Sex: Female

DRUGS (1)
  1. NEXPLANON [Suspect]
     Active Substance: ETONOGESTREL
     Indication: CONTRACEPTION
     Dosage: 1 ROD/3 YEARS
     Route: 059
     Dates: start: 201411, end: 20161027

REACTIONS (5)
  - Peripheral swelling [Unknown]
  - Hypoaesthesia [Unknown]
  - Pain in extremity [Unknown]
  - Incorrect drug administration duration [Unknown]
  - Menstruation irregular [Unknown]

NARRATIVE: CASE EVENT DATE: 2016
